FAERS Safety Report 4522415-3 (Version None)
Quarter: 2004Q4

REPORT INFORMATION
  Report Type: 
  Country: None (occurrence: None)
  Receive Date: 20041207
  Receipt Date: 20041123
  Transmission Date: 20050328
  Serious: Yes (Hospitalization)
  Sender: FDA-Public Use
  Company Number: US_0409105406

PATIENT
  Age: 65 Year
  Sex: Male

DRUGS (15)
  1. PEMETREXED [Suspect]
     Indication: MESOTHELIOMA
     Dosage: 500 MG/M2 OTHER
     Dates: start: 20040826
  2. GEMCITABINE HYDROCHLORIDE-IV (GEMCITABINE) [Suspect]
     Indication: MESOTHELIOMA
     Dosage: 1250 MG/M2 OTHER
     Dates: start: 20040826
  3. VITAMIN B-12 [Concomitant]
  4. FOLIC ACID [Concomitant]
  5. ZOCOR [Concomitant]
  6. GLUCOSAMINE [Concomitant]
  7. VITAMIN E (HERBAL OIL NOS) [Concomitant]
  8. ADVAIR DISKUS 100/50 [Concomitant]
  9. COZAAR [Concomitant]
  10. PERCOCET [Concomitant]
  11. LOVENOX [Concomitant]
  12. PROTONIX [Concomitant]
  13. BENADRYL [Concomitant]
  14. TERAZOSIN HCL [Concomitant]
  15. SENNA [Concomitant]

REACTIONS (17)
  - ASTHENIA [None]
  - BLOOD GLUCOSE INCREASED [None]
  - CEREBELLAR SYNDROME [None]
  - DIFFICULTY IN WALKING [None]
  - DIPLOPIA [None]
  - FALL [None]
  - GAIT DISTURBANCE [None]
  - HAEMATOCRIT DECREASED [None]
  - HYPOAESTHESIA [None]
  - MYOCLONUS [None]
  - NAUSEA [None]
  - PARAESTHESIA [None]
  - PCO2 INCREASED [None]
  - POLYNEUROPATHY [None]
  - RASH [None]
  - SENSORY DISTURBANCE [None]
  - TREMOR [None]
